FAERS Safety Report 9093936 (Version 1)
Quarter: 2013Q1

REPORT INFORMATION
  Report Type: Spontaneous
  Country: US (occurrence: None)
  Receive Date: 20130214
  Receipt Date: 20130214
  Transmission Date: 20140127
  Serious: Yes (Hospitalization)
  Sender: FDA-Public Use
  Company Number: None

PATIENT
  Age: 62 Year
  Sex: Female
  Weight: 64 kg

DRUGS (2)
  1. SULFAMETHOXAZOLE [Suspect]
     Dosage: 1 TABLET
     Route: 048
     Dates: end: 20130212
  2. SULFAMETHOXAZOLE/TRIMETHOPRIM [Concomitant]

REACTIONS (6)
  - Oedema peripheral [None]
  - Dizziness [None]
  - Asthenia [None]
  - Constipation [None]
  - Pancytopenia [None]
  - No therapeutic response [None]
